FAERS Safety Report 7637830-9 (Version None)
Quarter: 2011Q3

REPORT INFORMATION
  Report Type: 
  Country: None (occurrence: None)
  Receive Date: 20110727
  Receipt Date: 20110714
  Transmission Date: 20111222
  Serious: Yes (Other)
  Sender: FDA-Public Use
  Company Number: US-UCBSA-037353

PATIENT
  Sex: Male

DRUGS (13)
  1. AMBIEN [Concomitant]
     Dosage: 12.5 (UNITS UNSPECIFIED) EVERY NIGHT AT BED TIME
  2. CITALOPRAM HYDROBROMIDE [Concomitant]
  3. ZOFRAN [Concomitant]
  4. TRAMADOL HCL [Concomitant]
  5. SUCRALFATE [Concomitant]
  6. DIPHENOXYLATE [Concomitant]
     Dosage: WITH EACH MEAL
  7. AZATHIOPRINE [Concomitant]
  8. WELCHOL [Concomitant]
  9. VEDOZILUMAB/ PLACEBO [Suspect]
     Dates: start: 20110601
  10. OPIUM TINCTURE [Concomitant]
  11. PRILOSEC [Concomitant]
  12. CIMZIA [Suspect]
     Route: 058
     Dates: end: 20110401
  13. PREDNISONE [Concomitant]

REACTIONS (3)
  - NERVOUS SYSTEM DISORDER [None]
  - DRUG INEFFECTIVE [None]
  - BRAIN NEOPLASM [None]
